FAERS Safety Report 10236071 (Version 1)
Quarter: 2014Q2

REPORT INFORMATION
  Report Type: Spontaneous
  Country: FR (occurrence: FR)
  Receive Date: 20140613
  Receipt Date: 20140613
  Transmission Date: 20141212
  Serious: Yes (Hospitalization)
  Sender: FDA-Public Use
  Company Number: FR-GE HEALTHCARE MEDICAL DIAGNOSTICS-VISP-PR-1406S-0266

PATIENT
  Age: 67 Year
  Sex: Male

DRUGS (6)
  1. VISIPAQUE [Suspect]
     Indication: THROMBOSIS
     Route: 042
     Dates: start: 20140418, end: 20140418
  2. VISIPAQUE [Suspect]
     Indication: DIAGNOSTIC PROCEDURE
  3. PROFENID [Suspect]
     Indication: PAIN
     Dosage: DOSE NOT REPORTED
     Route: 048
  4. ZESTRIL [Suspect]
     Indication: HYPERTENSION
     Route: 048
     Dates: end: 20140422
  5. JANUMET [Concomitant]
     Dosage: 50 MG/1000 MG
     Route: 048
     Dates: end: 20140419
  6. SIMVASTATINE [Concomitant]
     Route: 048

REACTIONS (2)
  - Renal failure acute [Recovered/Resolved]
  - Anuria [Recovered/Resolved]
